FAERS Safety Report 6733712-5 (Version None)
Quarter: 2010Q2

REPORT INFORMATION
  Report Type: 
  Country: None (occurrence: None)
  Receive Date: 20100520
  Receipt Date: 20100507
  Transmission Date: 20101027
  Serious: Yes (Other)
  Sender: FDA-Public Use
  Company Number: PHHY2010BR29793

PATIENT
  Sex: Male
  Weight: 56 kg

DRUGS (1)
  1. LEPONEX [Suspect]
     Indication: ANXIETY
     Dosage: 1/2 TABLET (100 MG) IN THE MORNING
     Route: 048
     Dates: start: 20100506

REACTIONS (4)
  - AGGRESSION [None]
  - AGITATION [None]
  - NERVOUSNESS [None]
  - SOMNOLENCE [None]
